FAERS Safety Report 6942298-1 (Version None)
Quarter: 2010Q3

REPORT INFORMATION
  Report Type: 
  Country: None (occurrence: None)
  Receive Date: 20100826
  Receipt Date: 20100819
  Transmission Date: 20110219
  Serious: Yes (Other)
  Sender: FDA-Public Use
  Company Number: GB-BAYER-201031009GPV

PATIENT
  Age: 60 Year
  Sex: Male
  Weight: 46 kg

DRUGS (15)
  1. SORAFENIB [Suspect]
     Indication: HEPATIC NEOPLASM MALIGNANT
  2. SORAFENIB [Suspect]
     Dosage: TOTAL DAILY DOSE: 400 MG
     Dates: start: 20080401
  3. INSULIN [Concomitant]
     Indication: DIABETES MELLITUS
  4. LOPERAMIDE [Concomitant]
  5. LISINOPRIL [Concomitant]
     Indication: BLOOD PRESSURE MANAGEMENT
     Dosage: 20MG + 10MG
     Route: 048
  6. CO-CODAMOL 30/500 [Concomitant]
     Dosage: 1 - 2 TABS
  7. HUMULIN S [Concomitant]
     Dosage: 100UNITS/ML - 3ML CARTRIDGE
  8. GLUCOGEL [Concomitant]
     Dosage: 25 MG SINGLE DOSE TUBE
  9. LEVEMIR [Concomitant]
     Dosage: 100UNITS/ML - 3ML CARTRIDGE
  10. ASPIRIN [Concomitant]
  11. OMEPRAZOLE [Concomitant]
  12. AMLODIPINE [Concomitant]
  13. POLYFAX [Concomitant]
  14. VISCOPASTE PB7 10% ZINC PASTE BANDAGE [Concomitant]
  15. SILDENAFIL [Concomitant]
     Dosage: TAKE ONE HOUR BEFORE NEEDED

REACTIONS (6)
  - ALOPECIA [None]
  - ARTHRALGIA [None]
  - BLOOD GLUCOSE DECREASED [None]
  - DIARRHOEA [None]
  - HYPERKERATOSIS [None]
  - MUSCLE SPASMS [None]
